FAERS Safety Report 5251076-3 (Version None)
Quarter: 2007Q1

REPORT INFORMATION
  Report Type: 
  Country: None (occurrence: None)
  Receive Date: 20070228
  Receipt Date: 20060821
  Transmission Date: 20070707
  Serious: No
  Sender: FDA-Public Use
  Company Number: US-GLAXOSMITHKLINE-A0617462A

PATIENT
  Sex: Female

DRUGS (11)
  1. LAMICTAL [Suspect]
     Indication: BIPOLAR DISORDER
     Dosage: 25MG TWICE PER DAY
     Route: 048
     Dates: start: 20060601
  2. LEXAPRO [Concomitant]
  3. TRAZODONE HCL [Concomitant]
  4. METOPROLOL SUCCINATE [Concomitant]
  5. PRILOSEC [Concomitant]
  6. SAM E [Concomitant]
  7. CALCIUM [Concomitant]
  8. VITAMIN E [Concomitant]
  9. MULTI-VITAMIN [Concomitant]
  10. POLICOSANOL [Concomitant]
  11. GUGGULIPID [Concomitant]

REACTIONS (3)
  - ARTHRALGIA [None]
  - MYALGIA [None]
  - TREMOR [None]
